FAERS Safety Report 6625548-0 (Version None)
Quarter: 2010Q1

REPORT INFORMATION
  Report Type: 
  Country: None (occurrence: None)
  Receive Date: 20100310
  Receipt Date: 20100304
  Transmission Date: 20100710
  Serious: Yes (Congenital Anomaly)
  Sender: FDA-Public Use
  Company Number: GB-ABBOTT-09P-167-0595647-00

PATIENT
  Sex: Female

DRUGS (5)
  1. KALETRA [Suspect]
     Indication: DRUG EXPOSURE DURING PREGNANCY
     Route: 064
  2. EFAVIRENZ [Suspect]
     Indication: DRUG EXPOSURE DURING PREGNANCY
     Route: 064
  3. NEVIRAPINE [Suspect]
     Indication: DRUG EXPOSURE DURING PREGNANCY
     Route: 064
  4. COMBIVIR [Suspect]
     Indication: DRUG EXPOSURE DURING PREGNANCY
     Route: 064
  5. KIVEXA [Suspect]
     Indication: DRUG EXPOSURE DURING PREGNANCY
     Route: 064

REACTIONS (4)
  - CARDIAC MALPOSITION [None]
  - DIAPHRAGMATIC APLASIA [None]
  - DRUG EXPOSURE DURING PREGNANCY [None]
  - HEPATIC DISPLACEMENT [None]
